FAERS Safety Report 9548436 (Version 1)
Quarter: 2013Q3

REPORT INFORMATION
  Report Type: Spontaneous
  Country: US (occurrence: None)
  Receive Date: 20130919
  Receipt Date: 20130919
  Transmission Date: 20140515
  Serious: Yes (Other)
  Sender: FDA-Public Use
  Company Number: 2013P1019177

PATIENT
  Age: 88 Year
  Sex: Male

DRUGS (4)
  1. ROPINIROLE [Suspect]
     Indication: PARKINSON^S DISEASE
  2. LEVODOPA [Suspect]
     Indication: PARKINSON^S DISEASE
  3. RASAGILINE [Suspect]
     Indication: PARKINSON^S DISEASE
  4. RASAGILINE [Suspect]
     Indication: PARKINSON^S DISEASE

REACTIONS (2)
  - Freezing phenomenon [None]
  - Paradoxical drug reaction [None]
